FAERS Safety Report 12349749 (Version 1)
Quarter: 2016Q2

REPORT INFORMATION
  Report Type: Spontaneous
  Country: GB (occurrence: None)
  Receive Date: 20160506
  Receipt Date: 20160506
  Transmission Date: 20160815
  Serious: Yes (Hospitalization)
  Sender: FDA-Public Use
  Company Number: GB2016K1796SPO

PATIENT
  Age: 67 Year
  Sex: Female

DRUGS (2)
  1. LANSOPRAZOLE GENERIC (LANSOPRAZOLE) UNKNOWN [Suspect]
     Active Substance: LANSOPRAZOLE
     Route: 048
     Dates: start: 201206, end: 201307
  2. ZOTON (LANSOPRAZOLE) [Suspect]
     Active Substance: LANSOPRAZOLE
     Dates: start: 201308

REACTIONS (10)
  - Malaise [None]
  - Hypersensitivity [None]
  - Blister [None]
  - Lip swelling [None]
  - Stomatitis [None]
  - Reaction to drug excipients [None]
  - Drug ineffective [None]
  - Oral disorder [None]
  - Tremor [None]
  - Product substitution issue [None]

NARRATIVE: CASE EVENT DATE: 201307
